FAERS Safety Report 19309713 (Version 3)
Quarter: 2021Q3

REPORT INFORMATION
  Report Type: Report from Study
  Country: US (occurrence: US)
  Receive Date: 20210526
  Receipt Date: 20210713
  Transmission Date: 20211014
  Serious: Yes (Other)
  Sender: FDA-Public Use
  Company Number: US-INCYTE CORPORATION-2021IN004543

PATIENT

DRUGS (1)
  1. JAKAFI [Suspect]
     Active Substance: RUXOLITINIB
     Indication: POLYCYTHAEMIA VERA
     Dosage: UNK
     Route: 065
     Dates: start: 20200902

REACTIONS (9)
  - Pulmonary thrombosis [Unknown]
  - Arthropathy [Unknown]
  - Asthenia [Recovering/Resolving]
  - Dizziness [Unknown]
  - Atrial fibrillation [Unknown]
  - Seasonal allergy [Not Recovered/Not Resolved]
  - Vertigo [Unknown]
  - Illness [Recovering/Resolving]
  - Pain [Unknown]
